FAERS Safety Report 8719986 (Version 2)
Quarter: 2013Q4

REPORT INFORMATION
  Report Type: Report from Study
  Country: KR (occurrence: US)
  Receive Date: 20120813
  Receipt Date: 20131024
  Transmission Date: 20140711
  Serious: No
  Sender: FDA-Public Use
  Company Number: KR-009507513-1207USA009219

PATIENT
  Age: 63 Year
  Sex: Male

DRUGS (2)
  1. TEMODAR [Suspect]
     Indication: GLIOBLASTOMA MULTIFORME
  2. BEVACIZUMAB [Suspect]
     Indication: GLIOBLASTOMA MULTIFORME

REACTIONS (1)
  - Disease progression [Not Recovered/Not Resolved]
